FAERS Safety Report 11767352 (Version 1)
Quarter: 2015Q4

REPORT INFORMATION
  Report Type: Spontaneous
  Country: US (occurrence: US)
  Receive Date: 20151123
  Receipt Date: 20151123
  Transmission Date: 20160304
  Serious: No
  Sender: FDA-Public Use
  Company Number: US-PFIZER INC-2015395004

PATIENT
  Age: 38 Year
  Sex: Female

DRUGS (2)
  1. CHANTIX [Suspect]
     Active Substance: VARENICLINE TARTRATE
     Dosage: UNK
     Dates: start: 2006, end: 2006
  2. TEMAZEPAM. [Suspect]
     Active Substance: TEMAZEPAM
     Indication: INSOMNIA
     Dosage: UNK

REACTIONS (19)
  - Activities of daily living impaired [Unknown]
  - Fatigue [Unknown]
  - Feeling abnormal [Unknown]
  - Neck pain [Unknown]
  - Sleep disorder [Unknown]
  - Asthenia [Unknown]
  - Influenza like illness [Unknown]
  - Insomnia [Unknown]
  - Abnormal dreams [Unknown]
  - Crying [Unknown]
  - Condition aggravated [Unknown]
  - Headache [Unknown]
  - Pain in jaw [Unknown]
  - Toothache [Unknown]
  - Nausea [Unknown]
  - Tobacco user [Unknown]
  - Weight fluctuation [Unknown]
  - Malaise [Unknown]
  - Pain [Unknown]

NARRATIVE: CASE EVENT DATE: 2006
